FAERS Safety Report 7313540-2 (Version None)
Quarter: 2011Q1

REPORT INFORMATION
  Report Type: 
  Country: None (occurrence: None)
  Receive Date: 20110225
  Receipt Date: 20110215
  Transmission Date: 20110831
  Serious: No
  Sender: FDA-Public Use
  Company Number: US-PFIZER INC-2010155009

PATIENT
  Sex: Female

DRUGS (2)
  1. PROTONIX [Suspect]
     Dosage: 40 MG, UNK
     Dates: start: 20080101
  2. PANTOPRAZOLE [Suspect]
     Dosage: UNK

REACTIONS (5)
  - REFLUX GASTRITIS [None]
  - REACTION TO DRUG EXCIPIENTS [None]
  - DRUG INEFFECTIVE [None]
  - DIARRHOEA [None]
  - GENERAL PHYSICAL HEALTH DETERIORATION [None]
